FAERS Safety Report 8140370-4 (Version None)
Quarter: 2012Q1

REPORT INFORMATION
  Report Type: 
  Country: None (occurrence: None)
  Receive Date: 20120216
  Receipt Date: 20120213
  Transmission Date: 20120608
  Serious: No
  Sender: FDA-Public Use
  Company Number: US-PFIZER INC-2012022134

PATIENT
  Sex: Female
  Weight: 51.2 kg

DRUGS (2)
  1. IBUPROFEN (ADVIL) [Suspect]
     Indication: EPICONDYLITIS
     Dosage: 200 MG, 1X/DAY
     Route: 048
     Dates: start: 20120126
  2. IBUPROFEN (ADVIL) [Suspect]
     Indication: ARTHRALGIA

REACTIONS (2)
  - NAUSEA [None]
  - DIZZINESS [None]
